FAERS Safety Report 4370401-9 (Version None)
Quarter: 2004Q2

REPORT INFORMATION
  Report Type: 
  Country: None (occurrence: None)
  Receive Date: 20040603
  Receipt Date: 20040302
  Transmission Date: 20050107
  Serious: No
  Sender: FDA-Public Use
  Company Number: US-BRISTOL-MYERS SQUIBB COMPANY-12521738

PATIENT
  Age: 9 Year
  Sex: Male

DRUGS (3)
  1. ABILIFY [Suspect]
     Indication: ATTENTION DEFICIT/HYPERACTIVITY DISORDER
     Route: 048
  2. CLONIDINE HCL [Concomitant]
  3. ADDERALL 10 [Concomitant]

REACTIONS (1)
  - MUSCLE RIGIDITY [None]
